FAERS Safety Report 4666601-0 (Version None)
Quarter: 2005Q2

REPORT INFORMATION
  Report Type: 
  Country: None (occurrence: None)
  Receive Date: 20050519
  Receipt Date: 20041215
  Transmission Date: 20051028
  Serious: Yes (Other)
  Sender: FDA-Public Use
  Company Number: PHBS2004DK17002

PATIENT
  Age: 72 Year
  Sex: Female

DRUGS (4)
  1. AREDIA [Suspect]
     Indication: MULTIPLE MYELOMA
     Dosage: UNK, UNK
     Route: 042
     Dates: start: 20010923
  2. ALKERAN [Concomitant]
     Dates: start: 20010501, end: 20021001
  3. PREDNISONE TAB [Concomitant]
     Dates: start: 20010501, end: 20021001
  4. THALIDOMID [Concomitant]
     Dates: start: 20030701

REACTIONS (3)
  - ACTINOMYCOSIS [None]
  - OSTEONECROSIS [None]
  - PAIN IN JAW [None]
